FAERS Safety Report 13540592 (Version 1)
Quarter: 2017Q2

REPORT INFORMATION
  Report Type: Report from Study
  Country: CA (occurrence: CA)
  Receive Date: 20170512
  Receipt Date: 20170512
  Transmission Date: 20170830
  Serious: Yes (Hospitalization)
  Sender: FDA-Public Use
  Company Number: CA-AMGEN-CANCT2017070219

PATIENT
  Age: 4 Year
  Sex: Female

DRUGS (6)
  1. HYDROCORTISONE. [Concomitant]
     Active Substance: HYDROCORTISONE
     Dosage: 8-15 MG, UNK
     Route: 037
  2. MERCAPTOPURINE. [Concomitant]
     Active Substance: MERCAPTOPURINE
     Dosage: 75 MG/M2, UNK
     Route: 048
  3. VINCRISTINE [Concomitant]
     Active Substance: VINCRISTINE
     Dosage: 1.5 MG/M2, UNK
     Route: 042
  4. BLINATUMOMAB [Suspect]
     Active Substance: BLINATUMOMAB
     Indication: B PRECURSOR TYPE ACUTE LEUKAEMIA
     Dosage: 15 MUG/M2, CONTINUING
     Route: 042
     Dates: start: 20161220
  5. METHOTREXATE. [Concomitant]
     Active Substance: METHOTREXATE
     Dosage: 8-15 MG, UNK
     Route: 037
  6. CYTARABINE. [Concomitant]
     Active Substance: CYTARABINE
     Dosage: 16-30 MG, UNK
     Route: 037

REACTIONS (9)
  - Weight increased [Unknown]
  - Oedema peripheral [Unknown]
  - Blood bilirubin increased [Unknown]
  - Hypomagnesaemia [Unknown]
  - Pain [Unknown]
  - Hypoalbuminaemia [Unknown]
  - Pyrexia [Unknown]
  - Hypocalcaemia [Unknown]
  - Hypotension [Unknown]

NARRATIVE: CASE EVENT DATE: 20161221
